FAERS Safety Report 4590197-5 (Version None)
Quarter: 2005Q1

REPORT INFORMATION
  Report Type: 
  Country: None (occurrence: None)
  Receive Date: 20050217
  Receipt Date: 20050207
  Transmission Date: 20050727
  Serious: Yes (Hospitalization)
  Sender: FDA-Public Use
  Company Number: 2005026460

PATIENT
  Age: 75 Year
  Sex: Female
  Weight: 77.1115 kg

DRUGS (2)
  1. DETROL LA [Suspect]
     Indication: INCONTINENCE
     Dosage: 4 MG (4 MG, QD), ORAL
     Route: 048
     Dates: start: 20040101
  2. OXYBUTYNIN CHLORIDE [Concomitant]

REACTIONS (3)
  - DRUG EFFECT DECREASED [None]
  - FALL [None]
  - SPINAL FRACTURE [None]
